FAERS Safety Report 9350134 (Version 1)
Quarter: 2013Q2

REPORT INFORMATION
  Report Type: Report from Study
  Country: ES (occurrence: ES)
  Receive Date: 20130616
  Receipt Date: 20130616
  Transmission Date: 20140414
  Serious: Yes (Death)
  Sender: FDA-Public Use
  Company Number: ES-ROCHE-1235974

PATIENT
  Age: 61 Year
  Sex: Male

DRUGS (8)
  1. PEG-INTERFERON ALFA 2A [Suspect]
     Indication: CHRONIC HEPATITIS C
     Route: 058
     Dates: start: 20130128, end: 20130414
  2. RIBAVIRIN [Suspect]
     Indication: CHRONIC HEPATITIS C
     Route: 048
     Dates: start: 20130128, end: 20130414
  3. TELAPREVIR [Suspect]
     Indication: CHRONIC HEPATITIS C
     Route: 048
  4. INSULINA [Concomitant]
     Indication: DIABETES MELLITUS
     Route: 058
  5. CARVEDILOL [Concomitant]
     Route: 048
  6. ENALAPRIL [Concomitant]
     Route: 048
  7. ESPIRONOLACTONA [Concomitant]
     Indication: FLUID RETENTION
     Route: 048
  8. NORFLOXACINO [Concomitant]
     Route: 048

REACTIONS (1)
  - Multi-organ failure [Fatal]
